FAERS Safety Report 9188007 (Version 1)
Quarter: 2013Q1

REPORT INFORMATION
  Report Type: Spontaneous
  Country: US (occurrence: US)
  Receive Date: 20130325
  Receipt Date: 20130325
  Transmission Date: 20140127
  Serious: Yes (Death, Life-Threatening, Hospitalization, Disabling, Other)
  Sender: FDA-Public Use
  Company Number: US-GLAXOSMITHKLINE-A1015804A

PATIENT
  Age: 57 Year
  Sex: Female

DRUGS (5)
  1. ARIXTRA [Suspect]
     Indication: DEEP VEIN THROMBOSIS
     Dosage: 5INJ PER DAY
     Route: 058
     Dates: start: 20130117
  2. PAXIL [Concomitant]
  3. XGEVA [Concomitant]
  4. LORAZEPAM [Concomitant]
  5. ONDANSETRON [Concomitant]

REACTIONS (2)
  - Pneumonia [Fatal]
  - Lung disorder [Fatal]
